FAERS Safety Report 25626627 (Version 1)
Quarter: 2025Q3

REPORT INFORMATION
  Report Type: Spontaneous
  Country: CN (occurrence: CN)
  Receive Date: 20250731
  Receipt Date: 20250731
  Transmission Date: 20251020
  Serious: Yes (Other)
  Sender: MYLAN
  Company Number: CN-MYLANLABS-2025M1064633

PATIENT
  Age: 55 Year
  Sex: Male
  Weight: 83 kg

DRUGS (40)
  1. CELECOXIB [Suspect]
     Active Substance: CELECOXIB
     Indication: Analgesic therapy
     Dosage: 200 MILLIGRAM, BID
  2. CELECOXIB [Suspect]
     Active Substance: CELECOXIB
     Dosage: 200 MILLIGRAM, BID
     Route: 048
  3. CELECOXIB [Suspect]
     Active Substance: CELECOXIB
     Dosage: 200 MILLIGRAM, BID
     Route: 048
  4. CELECOXIB [Suspect]
     Active Substance: CELECOXIB
     Dosage: 200 MILLIGRAM, BID
  5. PEMETREXED [Suspect]
     Active Substance: PEMETREXED
     Indication: Non-small cell lung cancer
     Dosage: 1 GRAM, Q21D
  6. PEMETREXED [Suspect]
     Active Substance: PEMETREXED
     Dosage: 1 GRAM, Q21D
     Route: 042
  7. PEMETREXED [Suspect]
     Active Substance: PEMETREXED
     Dosage: 1 GRAM, Q21D
     Route: 042
  8. PEMETREXED [Suspect]
     Active Substance: PEMETREXED
     Dosage: 1 GRAM, Q21D
  9. CARBOPLATIN [Suspect]
     Active Substance: CARBOPLATIN
     Indication: Non-small cell lung cancer
     Dosage: 0.55 GRAM, Q21D
     Route: 042
  10. CARBOPLATIN [Suspect]
     Active Substance: CARBOPLATIN
     Dosage: 0.55 GRAM, Q21D
  11. CARBOPLATIN [Suspect]
     Active Substance: CARBOPLATIN
     Dosage: 0.55 GRAM, Q21D
  12. CARBOPLATIN [Suspect]
     Active Substance: CARBOPLATIN
     Dosage: 0.55 GRAM, Q21D
     Route: 042
  13. CARBOPLATIN [Suspect]
     Active Substance: CARBOPLATIN
     Route: 065
  14. CARBOPLATIN [Suspect]
     Active Substance: CARBOPLATIN
  15. CARBOPLATIN [Suspect]
     Active Substance: CARBOPLATIN
  16. CARBOPLATIN [Suspect]
     Active Substance: CARBOPLATIN
     Route: 065
  17. DACOMITINIB [Suspect]
     Active Substance: DACOMITINIB
     Indication: Non-small cell lung cancer
     Dosage: 30 MILLIGRAM, QD
  18. DACOMITINIB [Suspect]
     Active Substance: DACOMITINIB
     Dosage: 30 MILLIGRAM, QD
     Route: 048
  19. DACOMITINIB [Suspect]
     Active Substance: DACOMITINIB
     Dosage: 30 MILLIGRAM, QD
     Route: 048
  20. DACOMITINIB [Suspect]
     Active Substance: DACOMITINIB
     Dosage: 30 MILLIGRAM, QD
  21. IBANDRONATE SODIUM [Suspect]
     Active Substance: IBANDRONATE SODIUM
     Indication: Bone cancer metastatic
  22. IBANDRONATE SODIUM [Suspect]
     Active Substance: IBANDRONATE SODIUM
     Route: 042
  23. IBANDRONATE SODIUM [Suspect]
     Active Substance: IBANDRONATE SODIUM
     Route: 042
  24. IBANDRONATE SODIUM [Suspect]
     Active Substance: IBANDRONATE SODIUM
  25. FOLIC ACID [Concomitant]
     Active Substance: FOLIC ACID
     Dosage: 0.4 MILLIGRAM, QD
  26. FOLIC ACID [Concomitant]
     Active Substance: FOLIC ACID
     Dosage: 0.4 MILLIGRAM, QD
     Route: 048
  27. FOLIC ACID [Concomitant]
     Active Substance: FOLIC ACID
     Dosage: 0.4 MILLIGRAM, QD
     Route: 048
  28. FOLIC ACID [Concomitant]
     Active Substance: FOLIC ACID
     Dosage: 0.4 MILLIGRAM, QD
  29. DEXAMETHASONE [Concomitant]
     Active Substance: DEXAMETHASONE
     Dosage: 4 MILLIGRAM, BID (FOR 3 CONSECUTIVE DAYS)
  30. DEXAMETHASONE [Concomitant]
     Active Substance: DEXAMETHASONE
     Dosage: 4 MILLIGRAM, BID (FOR 3 CONSECUTIVE DAYS)
     Route: 048
  31. DEXAMETHASONE [Concomitant]
     Active Substance: DEXAMETHASONE
     Dosage: 4 MILLIGRAM, BID (FOR 3 CONSECUTIVE DAYS)
     Route: 048
  32. DEXAMETHASONE [Concomitant]
     Active Substance: DEXAMETHASONE
     Dosage: 4 MILLIGRAM, BID (FOR 3 CONSECUTIVE DAYS)
  33. VITAMIN B12 [Concomitant]
     Active Substance: CYANOCOBALAMIN
     Indication: Prophylaxis of nausea and vomiting
     Dosage: 1 MILLIGRAM, Q3W
  34. VITAMIN B12 [Concomitant]
     Active Substance: CYANOCOBALAMIN
     Dosage: 1 MILLIGRAM, Q3W
     Route: 030
  35. VITAMIN B12 [Concomitant]
     Active Substance: CYANOCOBALAMIN
     Dosage: 1 MILLIGRAM, Q3W
     Route: 030
  36. VITAMIN B12 [Concomitant]
     Active Substance: CYANOCOBALAMIN
     Dosage: 1 MILLIGRAM, Q3W
  37. RABEPRAZOLE SODIUM [Concomitant]
     Active Substance: RABEPRAZOLE SODIUM
     Indication: Prophylaxis
     Dosage: 20 MILLIGRAM, QD
  38. RABEPRAZOLE SODIUM [Concomitant]
     Active Substance: RABEPRAZOLE SODIUM
     Dosage: 20 MILLIGRAM, QD
     Route: 042
  39. RABEPRAZOLE SODIUM [Concomitant]
     Active Substance: RABEPRAZOLE SODIUM
     Dosage: 20 MILLIGRAM, QD
     Route: 042
  40. RABEPRAZOLE SODIUM [Concomitant]
     Active Substance: RABEPRAZOLE SODIUM
     Dosage: 20 MILLIGRAM, QD

REACTIONS (3)
  - Renal impairment [Unknown]
  - Anaemia [Recovering/Resolving]
  - Intentional product misuse [Unknown]

NARRATIVE: CASE EVENT DATE: 20230101
